FAERS Safety Report 10457867 (Version 1)
Quarter: 2014Q3

REPORT INFORMATION
  Report Type: Spontaneous
  Country: NL (occurrence: NL)
  Receive Date: 20140916
  Receipt Date: 20140916
  Transmission Date: 20150326
  Serious: Yes (Other)
  Sender: FDA-Public Use
  Company Number: NL-GLAXOSMITHKLINE-B1033459A

PATIENT
  Sex: Female

DRUGS (1)
  1. CUTIVATE [Suspect]
     Active Substance: FLUTICASONE PROPIONATE
     Indication: LOCAL SWELLING
     Route: 065

REACTIONS (2)
  - Abasia [Unknown]
  - Pain in extremity [Unknown]

NARRATIVE: CASE EVENT DATE: 2014
